FAERS Safety Report 6422499-1 (Version None)
Quarter: 2009Q4

REPORT INFORMATION
  Report Type: 
  Country: None (occurrence: None)
  Receive Date: 20091102
  Receipt Date: 20091026
  Transmission Date: 20100525
  Serious: Yes (Other)
  Sender: FDA-Public Use
  Company Number: JP-ASTRAZENECA-2009SE08149

PATIENT
  Age: 13663 Day
  Sex: Female
  Weight: 80 kg

DRUGS (2)
  1. ZOLADEX [Suspect]
     Indication: BREAST CANCER
     Route: 058
     Dates: start: 20090810
  2. NOLVADEX [Concomitant]
     Indication: BREAST CANCER
     Route: 048
     Dates: start: 20090710

REACTIONS (1)
  - FACE OEDEMA [None]
